FAERS Safety Report 25671203 (Version 1)
Quarter: 2025Q3

REPORT INFORMATION
  Report Type: Spontaneous
  Country: US (occurrence: US)
  Receive Date: 20250812
  Receipt Date: 20250812
  Transmission Date: 20251020
  Serious: Yes (Hospitalization, Other)
  Sender: BIOMARIN
  Company Number: US-SA-2025SA230760

PATIENT
  Age: 45 Year
  Sex: Female

DRUGS (1)
  1. LARONIDASE [Suspect]
     Active Substance: LARONIDASE
     Indication: Mucopolysaccharidosis I
     Dosage: 58 (UNITS UNSPECIFIED), QW
     Dates: start: 200306

REACTIONS (3)
  - Cerebrovascular accident [Recovering/Resolving]
  - Catheter site infection [Recovering/Resolving]
  - Pain in extremity [Unknown]
